FAERS Safety Report 13476107 (Version 1)
Quarter: 2017Q2

REPORT INFORMATION
  Report Type: Spontaneous
  Country: US (occurrence: US)
  Receive Date: 20170425
  Receipt Date: 20170425
  Transmission Date: 20170830
  Serious: Yes (Hospitalization, Other)
  Sender: FDA-Public Use
  Company Number: US-BAXTER-2017BAX017477

PATIENT
  Age: 62 Year
  Sex: Female

DRUGS (10)
  1. CYCLOPHOSPHAMIDE FOR INJECTION, USP [Suspect]
     Active Substance: CYCLOPHOSPHAMIDE
     Indication: ACUTE LYMPHOCYTIC LEUKAEMIA
     Dosage: TOTAL 2 CYCLES, INDUCTION THERAPY
     Route: 065
  2. DASATINIB [Suspect]
     Active Substance: DASATINIB
     Indication: PHILADELPHIA CHROMOSOME POSITIVE
     Dosage: RECEIVED 12 OF 24 PLANNED CYCLES
     Route: 065
  3. CYCLOPHOSPHAMIDE FOR INJECTION, USP [Suspect]
     Active Substance: CYCLOPHOSPHAMIDE
     Indication: PHILADELPHIA CHROMOSOME POSITIVE
  4. DOXORUBICIN [Suspect]
     Active Substance: DOXORUBICIN
     Indication: ACUTE LYMPHOCYTIC LEUKAEMIA
     Dosage: TOTAL 2 CYCLES, INDUCTION THERAPY
     Route: 065
  5. VINCRISTINE [Suspect]
     Active Substance: VINCRISTINE
     Indication: ACUTE LYMPHOCYTIC LEUKAEMIA
     Dosage: TOTAL 2 CYCLES, INDUCTION THERAPY
     Route: 065
  6. DOXORUBICIN [Suspect]
     Active Substance: DOXORUBICIN
     Indication: PHILADELPHIA CHROMOSOME POSITIVE
  7. DEXAMETHASONE. [Suspect]
     Active Substance: DEXAMETHASONE
     Indication: ACUTE LYMPHOCYTIC LEUKAEMIA
     Dosage: TOTAL 2 CYCLES, INDUCTION THERAPY
     Route: 065
  8. VINCRISTINE [Suspect]
     Active Substance: VINCRISTINE
     Indication: PHILADELPHIA CHROMOSOME POSITIVE
     Dosage: RECEIVED 12 OF 24 PLANNED CYCLES
     Route: 065
  9. DASATINIB [Suspect]
     Active Substance: DASATINIB
     Indication: ACUTE LYMPHOCYTIC LEUKAEMIA
     Dosage: TOTAL 2 CYCLES, INDUCTION THERAPY
     Route: 065
  10. DEXAMETHASONE. [Suspect]
     Active Substance: DEXAMETHASONE
     Indication: PHILADELPHIA CHROMOSOME POSITIVE

REACTIONS (7)
  - Pneumonia [Unknown]
  - Pleural effusion [Unknown]
  - Toxicity to various agents [Unknown]
  - Respiratory acidosis [Unknown]
  - Chronic obstructive pulmonary disease [Recovering/Resolving]
  - Acute respiratory failure [Recovering/Resolving]
  - Influenza [Recovering/Resolving]

NARRATIVE: CASE EVENT DATE: 20170317
